FAERS Safety Report 4479171-7 (Version None)
Quarter: 2004Q3

REPORT INFORMATION
  Report Type: 
  Country: None (occurrence: None)
  Receive Date: 20040923
  Receipt Date: 20040609
  Transmission Date: 20050211
  Serious: No
  Sender: FDA-Public Use
  Company Number: USA040668916

PATIENT
  Age: 79 Year
  Sex: Female
  Weight: 58 kg

DRUGS (7)
  1. FORTEO [Suspect]
     Indication: OSTEOPOROSIS
     Dosage: 20 UG/1 DAY
     Dates: start: 20040423
  2. ZOCOR [Concomitant]
  3. ZANTAC [Concomitant]
  4. SEREVENT [Concomitant]
  5. FLOVENT [Concomitant]
  6. MULTIVITAMIN [Concomitant]
  7. CALCIUM AND VITAMIN D [Concomitant]

REACTIONS (2)
  - BACK PAIN [None]
  - MOBILITY DECREASED [None]
